FAERS Safety Report 25931751 (Version 1)
Quarter: 2025Q4

REPORT INFORMATION
  Report Type: Spontaneous
  Country: US (occurrence: US)
  Receive Date: 20251016
  Receipt Date: 20251016
  Transmission Date: 20260118
  Serious: No
  Sender: SANOFI AVENTIS
  Company Number: US-SA-2025SA308837

PATIENT
  Sex: Male

DRUGS (1)
  1. WAYRILZ [Suspect]
     Active Substance: RILZABRUTINIB
     Indication: Gastrointestinal haemorrhage
     Dosage: UNK, BID
     Route: 048
     Dates: end: 20251006

REACTIONS (1)
  - Drug interaction [Unknown]
